FAERS Safety Report 6077151-1 (Version None)
Quarter: 2009Q1

REPORT INFORMATION
  Report Type: 
  Country: None (occurrence: None)
  Receive Date: 20090211
  Receipt Date: 20090129
  Transmission Date: 20090719
  Serious: Yes (Hospitalization)
  Sender: FDA-Public Use
  Company Number: 1000003838

PATIENT
  Age: 74 Year
  Sex: Male

DRUGS (10)
  1. ESCITALOPRAM [Suspect]
     Dosage: (10 MG),ORAL
     Route: 048
     Dates: start: 20081223, end: 20081227
  2. ESCITALOPRAM [Suspect]
     Dosage: 10 MG (10 MG,1 IN 1 D),ORAL
     Route: 048
     Dates: start: 20061117, end: 20081222
  3. IMOVANE [Concomitant]
  4. LEVOTHYROX [Concomitant]
  5. FOSAMAX [Concomitant]
  6. PANTESTONE [Concomitant]
  7. HYDROCORTISONE [Concomitant]
  8. MINIRIN [Concomitant]
  9. LANZOR [Concomitant]
  10. ERCEFURYL [Concomitant]

REACTIONS (6)
  - DIARRHOEA [None]
  - GASTROINTESTINAL DISORDER [None]
  - HEADACHE [None]
  - HYPONATRAEMIA [None]
  - MALAISE [None]
  - VOMITING [None]
